FAERS Safety Report 6164164-4 (Version None)
Quarter: 2009Q2

REPORT INFORMATION
  Report Type: 
  Country: None (occurrence: None)
  Receive Date: 20090420
  Receipt Date: 20090402
  Transmission Date: 20091009
  Serious: Yes (Other)
  Sender: FDA-Public Use
  Company Number: ADR1132009

PATIENT
  Age: 80 Year
  Sex: Male

DRUGS (10)
  1. METFORMIN HCL [Suspect]
     Indication: DIABETES MELLITUS
     Dosage: 2000 MG  ORAL
     Route: 048
  2. CAPTOPRIL ARROW 25 MG [Concomitant]
  3. FUROSEMIDE ARROW  40 MG [Concomitant]
  4. BISOPROLOL (CARDENSIEL 1.25 MG) [Concomitant]
  5. TRINITRINE (NITRIDERM) [Concomitant]
  6. ALLOPURINOL [Concomitant]
  7. REPAGLINIDE (NOVONORM) [Concomitant]
  8. DL-LYSINE ACETYLSALICYLATE (ASPEGIC) [Concomitant]
  9. DESLORATADINE (AERIUS) [Concomitant]
  10. LOSARTAN (COZAR) [Concomitant]

REACTIONS (2)
  - LIP SWELLING [None]
  - RASH ERYTHEMATOUS [None]
